FAERS Safety Report 9664294 (Version 2)
Quarter: 2013Q4

REPORT INFORMATION
  Report Type: Report from Study
  Country: KR (occurrence: KR)
  Receive Date: 20131101
  Receipt Date: 20131213
  Transmission Date: 20140711
  Serious: Yes (Hospitalization)
  Sender: FDA-Public Use
  Company Number: KR-SA-2013SA108779

PATIENT
  Age: 59 Year
  Sex: Male
  Weight: 65 kg

DRUGS (1)
  1. LANTUS [Suspect]
     Indication: DIABETES MELLITUS
     Dosage: DOSE:16 UNIT(S)
     Route: 058
     Dates: end: 201310

REACTIONS (2)
  - Loss of consciousness [Recovered/Resolved]
  - Upper limb fracture [Recovering/Resolving]
